FAERS Safety Report 19364551 (Version 2)
Quarter: 2021Q2

REPORT INFORMATION
  Report Type: Spontaneous
  Country: NO (occurrence: NO)
  Receive Date: 20210603
  Receipt Date: 20210618
  Transmission Date: 20210717
  Serious: Yes (Hospitalization)
  Sender: FDA-Public Use
  Company Number: NO-ROCHE-2842388

PATIENT
  Age: 47 Year
  Sex: Female

DRUGS (4)
  1. XOLAIR [Suspect]
     Active Substance: OMALIZUMAB
     Indication: ASTHMA
     Route: 065
     Dates: start: 200912
  2. EPIPEN [Concomitant]
     Active Substance: EPINEPHRINE
     Indication: PRODUCT USED FOR UNKNOWN INDICATION
     Dosage: UNK, 1ST DOSE
     Route: 065
  3. XOLAIR [Suspect]
     Active Substance: OMALIZUMAB
     Route: 065
  4. EPIPEN [Concomitant]
     Active Substance: EPINEPHRINE
     Dosage: UNK, 2ND DOSE
     Route: 065
     Dates: start: 20210526

REACTIONS (10)
  - Pyrexia [Unknown]
  - Angioedema [Unknown]
  - Abdominal distension [Unknown]
  - Weight increased [Unknown]
  - Haematoma [Unknown]
  - Pain in extremity [Unknown]
  - Intra-abdominal fluid collection [Unknown]
  - Injection site pruritus [Unknown]
  - Anaphylactic reaction [Unknown]
  - Headache [Unknown]
